FAERS Safety Report 21611597 (Version 1)
Quarter: 2022Q4

REPORT INFORMATION
  Report Type: Spontaneous
  Country: US (occurrence: None)
  Receive Date: 20221117
  Receipt Date: 20221117
  Transmission Date: 20230113
  Serious: No
  Sender: FDA-Public Use
  Company Number: None

PATIENT
  Sex: Female

DRUGS (1)
  1. DUPIXENT [Suspect]
     Active Substance: DUPILUMAB
     Indication: Dermatitis atopic
     Dosage: 300MG EVERY OTHER WEEK SUBCUTANEOUSLY
     Route: 058
     Dates: start: 202207

REACTIONS (5)
  - Product contamination physical [None]
  - Therapy interrupted [None]
  - Device defective [None]
  - Arthralgia [None]
  - Sciatica [None]
